FAERS Safety Report 22142298 (Version 3)
Quarter: 2023Q2

REPORT INFORMATION
  Report Type: Report from Study
  Country: FR (occurrence: None)
  Receive Date: 20230327
  Receipt Date: 20230517
  Transmission Date: 20230722
  Serious: Yes (Other)
  Sender: FDA-Public Use
  Company Number: 2023A063965

PATIENT
  Age: 62 Year
  Sex: Male

DRUGS (1)
  1. CILGAVIMAB\TIXAGEVIMAB [Suspect]
     Active Substance: CILGAVIMAB\TIXAGEVIMAB
     Indication: COVID-19 prophylaxis
     Dosage: UNK
     Route: 030

REACTIONS (1)
  - Acute coronary syndrome [Recovered/Resolved]
